FAERS Safety Report 16523616 (Version 1)
Quarter: 2019Q3

REPORT INFORMATION
  Report Type: Other
  Country: US (occurrence: US)
  Receive Date: 20190703
  Receipt Date: 20190703
  Transmission Date: 20191004
  Serious: Yes (Death)
  Sender: FDA-Public Use
  Company Number: US-APPCO PHARMA LLC-2070273

PATIENT
  Age: 25 Year
  Sex: Female

DRUGS (3)
  1. 25I-NBOME [Interacting]
     Active Substance: 25I-NBOME
     Route: 045
  2. FLUOXETINE [Suspect]
     Active Substance: FLUOXETINE HYDROCHLORIDE
     Indication: ANXIETY
     Route: 065
  3. LITHIUM. [Suspect]
     Active Substance: LITHIUM
     Route: 065

REACTIONS (3)
  - Serotonin syndrome [Fatal]
  - Drug interaction [Fatal]
  - Cardio-respiratory arrest [Fatal]
